FAERS Safety Report 10014006 (Version 1)
Quarter: 2014Q1

REPORT INFORMATION
  Report Type: Report from Study
  Country: US (occurrence: US)
  Receive Date: 20140317
  Receipt Date: 20140317
  Transmission Date: 20141002
  Serious: Yes (Hospitalization)
  Sender: FDA-Public Use
  Company Number: US-JNJFOC-20140301895

PATIENT
  Sex: Male
  Weight: 88.45 kg

DRUGS (9)
  1. ZYTIGA [Suspect]
     Indication: PROSTATE CANCER
     Route: 048
     Dates: start: 201311
  2. ZYTIGA [Suspect]
     Indication: PROSTATE CANCER
     Route: 048
     Dates: start: 2013, end: 201311
  3. OXYCODONE [Concomitant]
     Indication: PAIN
     Route: 048
     Dates: start: 2004
  4. OXYCONTIN [Concomitant]
     Indication: PAIN
     Route: 048
     Dates: start: 2013
  5. DRONABINOL [Concomitant]
     Indication: PAIN
     Route: 048
     Dates: start: 2013
  6. ALPRAZOLAM [Concomitant]
     Indication: MANIA
     Route: 048
  7. GABAPENTIN [Concomitant]
     Indication: FIBROMYALGIA
     Route: 048
     Dates: start: 2013
  8. LITHIUM [Concomitant]
     Route: 048
     Dates: end: 201401
  9. LITHIUM [Concomitant]
     Route: 048
     Dates: start: 201401

REACTIONS (3)
  - Gastroenteritis salmonella [Recovered/Resolved]
  - Ulcer [Unknown]
  - Incorrect dose administered [Unknown]
